FAERS Safety Report 20105093 (Version 2)
Quarter: 2022Q1

REPORT INFORMATION
  Report Type: Report from Study
  Country: MX (occurrence: MX)
  Receive Date: 20211124
  Receipt Date: 20220111
  Transmission Date: 20220424
  Serious: Yes (Hospitalization, Other)
  Sender: FDA-Public Use
  Company Number: MX-NOVARTISPH-NVSC2021MX014584

PATIENT
  Age: 32 Year
  Sex: Female
  Weight: 88 kg

DRUGS (9)
  1. GILENYA [Suspect]
     Active Substance: FINGOLIMOD HYDROCHLORIDE
     Indication: Multiple sclerosis
     Dosage: 0.5 MG, QD
     Route: 048
     Dates: start: 20191201
  2. GILENYA [Suspect]
     Active Substance: FINGOLIMOD HYDROCHLORIDE
     Dosage: 0.5 MG, QD
     Route: 048
     Dates: start: 202105
  3. GILENYA [Suspect]
     Active Substance: FINGOLIMOD HYDROCHLORIDE
     Dosage: 0.5 MG, QD
     Route: 048
  4. GILENYA [Suspect]
     Active Substance: FINGOLIMOD HYDROCHLORIDE
     Dosage: 0.5 MG, QD, (2 YEARS AGO)
     Route: 048
  5. CITALOPRAM [Concomitant]
     Active Substance: CITALOPRAM HYDROBROMIDE
     Indication: Emotional disorder
     Dosage: 1 DOSAGE FORM, QD
     Route: 048
     Dates: start: 201812
  6. CITALOPRAM [Concomitant]
     Active Substance: CITALOPRAM HYDROBROMIDE
     Dosage: 1 DOSAGE FORM, QD, (4 YEARS AGO)
     Route: 048
  7. CLONAZEPAM [Concomitant]
     Active Substance: CLONAZEPAM
     Indication: Insomnia
     Dosage: 1 DOSAGE FORM, (IN THE NIGHT)
     Route: 048
  8. TOPIRAMATE [Concomitant]
     Active Substance: TOPIRAMATE
     Indication: Migraine
     Dosage: 2 DOSAGE FORM, QD, (3 YEARS AGO)
     Route: 048
  9. ZOLMITRIPTAN [Concomitant]
     Active Substance: ZOLMITRIPTAN
     Indication: Migraine
     Dosage: 1 DOSAGE FORM, PRN, (3 YEARS AGO)
     Route: 048

REACTIONS (13)
  - Multiple sclerosis relapse [Recovered/Resolved]
  - Hemiparesis [Recovered/Resolved]
  - Incontinence [Recovered/Resolved]
  - Respiratory disorder [Recovered/Resolved]
  - Asthma [Not Recovered/Not Resolved]
  - Vomiting [Recovered/Resolved]
  - Vertigo [Recovered/Resolved]
  - Balance disorder [Recovered/Resolved]
  - Memory impairment [Recovered/Resolved]
  - Weight decreased [Unknown]
  - Aphasia [Recovered/Resolved]
  - Product dose omission issue [Unknown]
  - Product availability issue [Unknown]

NARRATIVE: CASE EVENT DATE: 20210501
